FAERS Safety Report 9129893 (Version 4)
Quarter: 2013Q3

REPORT INFORMATION
  Report Type: Report from Study
  Country: US (occurrence: US)
  Receive Date: 20130228
  Receipt Date: 20130809
  Transmission Date: 20140515
  Serious: Yes (Hospitalization, Other)
  Sender: FDA-Public Use
  Company Number: US-ABBOTT-13P-163-1052818-00

PATIENT
  Sex: Female
  Weight: 77.63 kg

DRUGS (6)
  1. HUMIRA [Suspect]
     Indication: PSORIASIS
     Route: 058
     Dates: start: 201002
  2. HUMIRA [Suspect]
     Route: 058
     Dates: start: 2010, end: 201205
  3. HUMIRA [Suspect]
     Route: 058
     Dates: start: 20130131, end: 20130131
  4. HUMIRA [Suspect]
     Route: 058
     Dates: start: 20130214
  5. UNKNOWN WATER PILL [Concomitant]
     Indication: BLOOD PRESSURE
  6. ATARAX [Concomitant]
     Indication: SEASONAL ALLERGY

REACTIONS (5)
  - Cardiac perforation [Recovered/Resolved]
  - Breast cancer [Recovered/Resolved]
  - Breast neoplasm [Unknown]
  - Pain of skin [Not Recovered/Not Resolved]
  - Psoriasis [Not Recovered/Not Resolved]
